FAERS Safety Report 8830883 (Version 2)
Quarter: 2012Q4

REPORT INFORMATION
  Report Type: 
  Country: US (occurrence: US)
  Receive Date: 20121008
  Receipt Date: 20121025
  Transmission Date: 20130627
  Serious: Yes (Other)
  Sender: FDA-Public Use
  Company Number: US-PFIZER INC-2012247836

PATIENT
  Sex: Female

DRUGS (1)
  1. LYRICA [Suspect]
     Dosage: 200 mg, 3x/day
     Route: 048

REACTIONS (7)
  - Pneumonia [Unknown]
  - Paralysis [Unknown]
  - Apparent death [Unknown]
  - Multiple fractures [Unknown]
  - Impaired work ability [Unknown]
  - Pain [Unknown]
  - Carpal tunnel syndrome [Unknown]
